FAERS Safety Report 5881584-3 (Version None)
Quarter: 2008Q3

REPORT INFORMATION
  Report Type: 
  Country: None (occurrence: None)
  Receive Date: 20080912
  Receipt Date: 20080708
  Transmission Date: 20090109
  Serious: Yes (Hospitalization)
  Sender: FDA-Public Use
  Company Number: US-ABBOTT-08P-163-0460782-00

PATIENT
  Sex: Female
  Weight: 99.88 kg

DRUGS (4)
  1. HUMIRA [Suspect]
     Indication: RHEUMATOID ARTHRITIS
     Route: 058
     Dates: start: 20070101
  2. RITUXIMAB [Concomitant]
     Indication: RHEUMATOID ARTHRITIS
  3. AZATHIOPRINE [Concomitant]
     Indication: RHEUMATOID ARTHRITIS
  4. CLOPIDOGREL [Concomitant]
     Indication: STENT PLACEMENT
     Dates: start: 20070101

REACTIONS (3)
  - CALCINOSIS [None]
  - CHEST PAIN [None]
  - MEMORY IMPAIRMENT [None]
